FAERS Safety Report 7478127-X (Version None)
Quarter: 2011Q2

REPORT INFORMATION
  Report Type: 
  Country: None (occurrence: None)
  Receive Date: 20110513
  Receipt Date: 20110506
  Transmission Date: 20111010
  Serious: Yes (Other)
  Sender: FDA-Public Use
  Company Number: CA-ABBOTT-11P-028-0724311-00

PATIENT
  Sex: Female
  Weight: 58.112 kg

DRUGS (1)
  1. HUMIRA [Suspect]
     Indication: CROHN'S DISEASE
     Route: 058
     Dates: start: 20101225

REACTIONS (13)
  - COLONIC STENOSIS [None]
  - MOOD ALTERED [None]
  - ACNE [None]
  - MEMORY IMPAIRMENT [None]
  - HYPOAESTHESIA [None]
  - PHARYNGEAL OEDEMA [None]
  - WEIGHT DECREASED [None]
  - ANGER [None]
  - LOSS OF CONSCIOUSNESS [None]
  - MELANOCYTIC NAEVUS [None]
  - BURNING SENSATION [None]
  - IMPAIRED HEALING [None]
  - NASAL CONGESTION [None]
